FAERS Safety Report 17741473 (Version 2)
Quarter: 2021Q2

REPORT INFORMATION
  Report Type: Spontaneous
  Country: US (occurrence: US)
  Receive Date: 20200504
  Receipt Date: 20210407
  Transmission Date: 20210716
  Serious: Yes (Other)
  Sender: FDA-Public Use
  Company Number: US-PERRIGO-20US006223

PATIENT
  Age: 62 Year
  Sex: Male

DRUGS (9)
  1. PREVACID [Suspect]
     Active Substance: LANSOPRAZOLE
     Dosage: UNKNOWN, UNKNOWN
     Route: 065
     Dates: start: 200201, end: 201001
  2. PREVACID [Suspect]
     Active Substance: LANSOPRAZOLE
     Indication: GASTROOESOPHAGEAL REFLUX DISEASE
     Dosage: 40 MG, QD
     Route: 065
     Dates: start: 2000, end: 2015
  3. PREVACID 24 HR [Suspect]
     Active Substance: LANSOPRAZOLE
     Indication: GASTROOESOPHAGEAL REFLUX DISEASE
     Dosage: UNKNOWN, QD
     Route: 048
     Dates: start: 20090518, end: 201001
  4. NEXIUM [Suspect]
     Active Substance: ESOMEPRAZOLE MAGNESIUM
     Dosage: 40 MG, QD
     Route: 065
     Dates: start: 20100421, end: 20131218
  5. OMEPRAZOLE                         /00661202/ [Suspect]
     Active Substance: OMEPRAZOLE SODIUM
     Indication: GASTROOESOPHAGEAL REFLUX DISEASE
     Dosage: 40 MG, BID
     Route: 048
     Dates: start: 20160223, end: 20170321
  6. ESOMEPRAZOLE MAGNESIUM. [Suspect]
     Active Substance: ESOMEPRAZOLE MAGNESIUM
     Indication: GASTROOESOPHAGEAL REFLUX DISEASE
     Dosage: 40 MG, QD
     Route: 065
     Dates: start: 20150417
  7. OMEPRAZOLE                         /00661202/ [Suspect]
     Active Substance: OMEPRAZOLE SODIUM
     Dosage: 40 MG, QD
     Route: 065
  8. NEXIUM [Suspect]
     Active Substance: ESOMEPRAZOLE MAGNESIUM
     Indication: GASTROOESOPHAGEAL REFLUX DISEASE
     Dosage: 40 MG, QD
     Route: 048
     Dates: start: 2000, end: 2016
  9. ESOMEPRAZOLE. [Suspect]
     Active Substance: ESOMEPRAZOLE MAGNESIUM
     Indication: GASTROOESOPHAGEAL REFLUX DISEASE
     Dosage: 40 MG, QD
     Route: 065
     Dates: start: 2015

REACTIONS (10)
  - Hyperparathyroidism secondary [Unknown]
  - Chronic kidney disease [Not Recovered/Not Resolved]
  - Nephrolithiasis [Unknown]
  - Nephropathy [Unknown]
  - Renal impairment [Unknown]
  - Renal failure [Unknown]
  - Nocturia [Unknown]
  - Proteinuria [Unknown]
  - Condition aggravated [Unknown]
  - Diabetic nephropathy [Unknown]

NARRATIVE: CASE EVENT DATE: 2008
